FAERS Safety Report 11124895 (Version 1)
Quarter: 2015Q2

REPORT INFORMATION
  Report Type: Spontaneous
  Country: CN (occurrence: CN)
  Receive Date: 20150520
  Receipt Date: 20150520
  Transmission Date: 20150821
  Serious: Yes (Other)
  Sender: FDA-Public Use
  Company Number: CN-ROCHE-1579762

PATIENT
  Age: 58 Year
  Sex: Male
  Weight: 70 kg

DRUGS (1)
  1. PEGASYS [Suspect]
     Active Substance: PEGINTERFERON ALFA-2A
     Indication: HEPATITIS C
     Dosage: ON 16/OCT/2014, LAST DOSE OF  PEG-INTERFERON ALFA 2A PRIOR TO SAE.
     Route: 058
     Dates: start: 20140508, end: 20141021

REACTIONS (2)
  - Urticaria [Recovering/Resolving]
  - Hyperpyrexia [Recovered/Resolved]

NARRATIVE: CASE EVENT DATE: 20141021
